FAERS Safety Report 9192190 (Version 1)
Quarter: 2013Q1

REPORT INFORMATION
  Report Type: Spontaneous
  Country: DE (occurrence: DE)
  Receive Date: 20130327
  Receipt Date: 20130327
  Transmission Date: 20140127
  Serious: Yes (Hospitalization)
  Sender: FDA-Public Use
  Company Number: PHHY2013DE029069

PATIENT
  Age: 70 Year
  Sex: Female

DRUGS (1)
  1. ZOLEDRONATE [Suspect]
     Indication: BREAST CANCER

REACTIONS (1)
  - Osteonecrosis of jaw [Recovered/Resolved]
